FAERS Safety Report 14061370 (Version 1)
Quarter: 2017Q4

REPORT INFORMATION
  Report Type: Spontaneous
  Country: IT (occurrence: IT)
  Receive Date: 20171009
  Receipt Date: 20171009
  Transmission Date: 20180321
  Serious: Yes (Other)
  Sender: FDA-Public Use
  Company Number: IT-ASTRAZENECA-2017SF00596

PATIENT
  Age: 22077 Day
  Sex: Female

DRUGS (4)
  1. LYNPARZA [Suspect]
     Active Substance: OLAPARIB
     Indication: OVARIAN CANCER
     Dosage: 12 CAPSULE PER DAY
     Route: 048
  2. PATRIET [Concomitant]
     Indication: PROPHYLAXIS
  3. LYNPARZA [Suspect]
     Active Substance: OLAPARIB
     Indication: OVARIAN CANCER
     Dosage: 16 CAPSULE PER DAY
     Route: 048
     Dates: start: 20170614
  4. LEVOBREN [Concomitant]
     Active Substance: LEVOSULPIRIDE

REACTIONS (6)
  - Malignant neoplasm progression [Not Recovered/Not Resolved]
  - Tumour marker increased [Unknown]
  - Tremor [Not Recovered/Not Resolved]
  - Fatigue [Not Recovered/Not Resolved]
  - Treatment noncompliance [Not Recovered/Not Resolved]
  - Dysphagia [Not Recovered/Not Resolved]

NARRATIVE: CASE EVENT DATE: 20170614
